FAERS Safety Report 9719721 (Version 2)
Quarter: 2013Q4

REPORT INFORMATION
  Report Type: Spontaneous
  Country: IN (occurrence: IN)
  Receive Date: 20131128
  Receipt Date: 20131128
  Transmission Date: 20140711
  Serious: Yes (Death)
  Sender: FDA-Public Use
  Company Number: IN-ROCHE-1296310

PATIENT
  Age: 50 Year
  Sex: Male
  Weight: 70 kg

DRUGS (4)
  1. METALYSE [Suspect]
     Indication: ACUTE MYOCARDIAL INFARCTION
     Route: 042
     Dates: start: 20131022
  2. AVIL [Concomitant]
  3. ASPIRIN [Concomitant]
  4. TICAGRELOR [Concomitant]

REACTIONS (2)
  - Haemorrhage intracranial [Fatal]
  - Death [Fatal]
